FAERS Safety Report 4981445-8 (Version None)
Quarter: 2006Q2

REPORT INFORMATION
  Report Type: 
  Country: None (occurrence: None)
  Receive Date: 20060424
  Receipt Date: 20060208
  Transmission Date: 20061013
  Serious: Yes (Hospitalization)
  Sender: FDA-Public Use
  Company Number: US-MERCK-0602USA02603

PATIENT
  Age: 72 Year
  Sex: Female
  Weight: 55 kg

DRUGS (6)
  1. VIOXX [Suspect]
     Indication: ARTHRITIS
     Route: 048
     Dates: start: 20020401, end: 20020701
  2. VIOXX [Suspect]
     Route: 048
     Dates: start: 20030319, end: 20040930
  3. SINGULAIR [Concomitant]
     Route: 065
  4. FOSAMAX [Concomitant]
     Route: 065
  5. TOPROL-XL [Concomitant]
     Indication: HYPERTENSION
     Route: 065
     Dates: start: 20040701
  6. NORVASC [Concomitant]
     Indication: HYPERTENSION
     Route: 065
     Dates: start: 20040701

REACTIONS (4)
  - ARTERIAL DISORDER [None]
  - CEREBROVASCULAR ACCIDENT [None]
  - GALLBLADDER DISORDER [None]
  - THYROID DISORDER [None]
